FAERS Safety Report 11073657 (Version 1)
Quarter: 2015Q2

REPORT INFORMATION
  Report Type: Spontaneous
  Country: US (occurrence: US)
  Receive Date: 20150428
  Receipt Date: 20150428
  Transmission Date: 20150821
  Serious: Yes (Other)
  Sender: FDA-Public Use
  Company Number: PHHY2015US049010

PATIENT
  Sex: Male

DRUGS (9)
  1. LEVOTHYROXINE [Suspect]
     Active Substance: LEVOTHYROXINE
     Indication: THYROID DISORDER
     Dosage: 125 UG, QD
     Route: 065
     Dates: start: 2000
  2. MELOXICAM. [Suspect]
     Active Substance: MELOXICAM
     Indication: ARTHRITIS
     Dosage: 15 MG, UNK
     Route: 065
     Dates: end: 201502
  3. SUCRALFATE. [Suspect]
     Active Substance: SUCRALFATE
     Indication: ABDOMINAL PAIN UPPER
     Dosage: 1 G, QID
     Route: 065
     Dates: start: 2013
  4. PANTOPRAZOLE [Suspect]
     Active Substance: PANTOPRAZOLE SODIUM
     Indication: PRODUCT USED FOR UNKNOWN INDICATION
     Dosage: 20 MG, QD
     Route: 065
     Dates: start: 2013
  5. FINASTERIDE. [Suspect]
     Active Substance: FINASTERIDE
     Indication: PROSTATIC OPERATION
     Dosage: 5 MG, QD
     Route: 065
     Dates: start: 2014
  6. BENAZEPRIL [Suspect]
     Active Substance: BENAZEPRIL\BENAZEPRIL HYDROCHLORIDE
     Indication: BLOOD PRESSURE ABNORMAL
     Dosage: 40 MG, QD
     Route: 065
     Dates: start: 2010
  7. CLONAZEPAM. [Suspect]
     Active Substance: CLONAZEPAM
     Indication: EAR OPERATION
  8. CLONAZEPAM. [Suspect]
     Active Substance: CLONAZEPAM
     Indication: DIZZINESS
     Dosage: 1 MG, BID
     Route: 065
     Dates: start: 2011
  9. ATORVASTATIN [Suspect]
     Active Substance: ATORVASTATIN
     Indication: PRODUCT USED FOR UNKNOWN INDICATION
     Dosage: 20 MG, QD
     Route: 065
     Dates: start: 2010

REACTIONS (6)
  - Gastrooesophageal reflux disease [Unknown]
  - Gastritis [Not Recovered/Not Resolved]
  - Abdominal pain upper [Not Recovered/Not Resolved]
  - Gastric cancer [Unknown]
  - Abdominal pain [Not Recovered/Not Resolved]
  - Duodenal ulcer [Unknown]

NARRATIVE: CASE EVENT DATE: 2013
